FAERS Safety Report 7584648-1 (Version None)
Quarter: 2011Q2

REPORT INFORMATION
  Report Type: 
  Country: None (occurrence: None)
  Receive Date: 20110630
  Receipt Date: 20110621
  Transmission Date: 20111010
  Serious: Yes (Hospitalization)
  Sender: FDA-Public Use
  Company Number: CA-ASTRAZENECA-2011SE33731

PATIENT
  Age: 79 Year
  Sex: Male

DRUGS (1)
  1. SYMBICORT [Suspect]
     Indication: ASTHMA
     Dosage: 200 MCG TWO TIMES A DAY
     Route: 055
     Dates: start: 20110514, end: 20110525

REACTIONS (3)
  - CONTUSION [None]
  - JOINT STIFFNESS [None]
  - ARTHRALGIA [None]
